FAERS Safety Report 20107586 (Version 10)
Quarter: 2022Q1

REPORT INFORMATION
  Report Type: Report from Study
  Country: US (occurrence: US)
  Receive Date: 20211124
  Receipt Date: 20220308
  Transmission Date: 20220423
  Serious: No
  Sender: FDA-Public Use
  Company Number: US-NOVARTISTESTPH-NVSC2021US269046

PATIENT
  Age: 45 Year
  Sex: Female

DRUGS (1)
  1. KESIMPTA [Suspect]
     Active Substance: OFATUMUMAB
     Indication: Multiple sclerosis
     Dosage: 20 MG
     Route: 058
     Dates: start: 20211115

REACTIONS (19)
  - Chills [Recovered/Resolved]
  - Cough [Unknown]
  - Asthenia [Unknown]
  - Insomnia [Unknown]
  - Migraine [Unknown]
  - Fungal infection [Unknown]
  - Tongue coated [Unknown]
  - Premature menopause [Unknown]
  - Paraesthesia [Unknown]
  - Wrong technique in device usage process [Unknown]
  - Weight decreased [Unknown]
  - Toothache [Unknown]
  - Depressed mood [Unknown]
  - Pain in extremity [Unknown]
  - Nasopharyngitis [Unknown]
  - Pyrexia [Recovered/Resolved]
  - Injection site bruising [Recovering/Resolving]
  - Injection site haemorrhage [Recovering/Resolving]
  - Fatigue [Unknown]

NARRATIVE: CASE EVENT DATE: 20211115
